FAERS Safety Report 13465540 (Version 3)
Quarter: 2017Q2

REPORT INFORMATION
  Report Type: Spontaneous
  Country: JP (occurrence: JP)
  Receive Date: 20170421
  Receipt Date: 20170526
  Transmission Date: 20170830
  Serious: Yes (Hospitalization)
  Sender: FDA-Public Use
  Company Number: JP-B.I. PHARMACEUTICALS,INC./RIDGEFIELD-2017-NB-002202

PATIENT
  Age: 90 Year
  Sex: Female

DRUGS (1)
  1. TRAZENTA [Suspect]
     Active Substance: LINAGLIPTIN
     Indication: DIABETES MELLITUS
     Route: 048

REACTIONS (4)
  - Loss of personal independence in daily activities [Unknown]
  - Hypoglycaemic encephalopathy [Unknown]
  - Cognitive disorder [Unknown]
  - Hypoglycaemia [Recovering/Resolving]
